FAERS Safety Report 20668719 (Version 1)
Quarter: 2022Q2

REPORT INFORMATION
  Report Type: Spontaneous
  Country: CN (occurrence: CN)
  Receive Date: 20220404
  Receipt Date: 20220404
  Transmission Date: 20220720
  Serious: Yes (Hospitalization, Other)
  Sender: FDA-Public Use
  Company Number: CN-ASTELLAS-2022US011919

PATIENT
  Age: 50 Year
  Sex: Male
  Weight: 54 kg

DRUGS (15)
  1. TACROLIMUS [Interacting]
     Active Substance: TACROLIMUS
     Indication: Renal transplant
     Route: 065
     Dates: start: 2018, end: 2018
  2. TACROLIMUS [Interacting]
     Active Substance: TACROLIMUS
     Route: 065
     Dates: start: 20180411, end: 201804
  3. TACROLIMUS [Interacting]
     Active Substance: TACROLIMUS
     Dosage: 0.5 MG, ONCE DAILY
     Route: 065
     Dates: start: 20180415, end: 201804
  4. TACROLIMUS [Interacting]
     Active Substance: TACROLIMUS
     Dosage: 0.5 MG, EVERY OTHER DAY
     Route: 065
     Dates: start: 20180418, end: 2018
  5. TACROLIMUS [Interacting]
     Active Substance: TACROLIMUS
     Route: 065
     Dates: start: 201805, end: 201805
  6. TACROLIMUS [Interacting]
     Active Substance: TACROLIMUS
     Route: 065
     Dates: start: 201805
  7. MICAFUNGIN [Suspect]
     Active Substance: MICAFUNGIN
     Indication: Infection prophylaxis
     Route: 065
     Dates: start: 2018
  8. PREDNISONE [Suspect]
     Active Substance: PREDNISONE
     Indication: Renal transplant
     Dosage: 30 MG, ONCE DAILY (ONCE AFTER GETTING UP IN THE MORNING)
     Route: 065
     Dates: start: 2018
  9. MYCOPHENOLATE MOFETIL [Suspect]
     Active Substance: MYCOPHENOLATE MOFETIL
     Indication: Renal transplant
     Dosage: 0.5 G, EVERY 12 HOURS
     Route: 065
     Dates: start: 2018
  10. VORICONAZOLE [Interacting]
     Active Substance: VORICONAZOLE
     Indication: Infection prophylaxis
     Dosage: 400 MG, EVERY 12 HOURS (ON DAY 1)
     Route: 065
     Dates: start: 20180411, end: 2018
  11. VORICONAZOLE [Interacting]
     Active Substance: VORICONAZOLE
     Dosage: 200 MG, EVERY 12 HOURS (SUBSEQUENTLY)
     Route: 065
     Dates: start: 2018, end: 20180507
  12. RIFAMPIN [Interacting]
     Active Substance: RIFAMPIN
     Indication: Tuberculosis
     Dosage: 0.45 G, UNKNOWN FREQ.
     Route: 065
     Dates: start: 201805
  13. MEROPENEM [Concomitant]
     Active Substance: MEROPENEM
     Indication: Infection prophylaxis
     Route: 065
     Dates: start: 2018
  14. GANCICLOVIR [Concomitant]
     Active Substance: GANCICLOVIR
     Indication: Infection prophylaxis
     Dosage: 0.25 G, ONCE DAILY
     Route: 065
     Dates: start: 2018
  15. CEFOPERAZONE SODIUM\SULBACTAM SODIUM [Concomitant]
     Active Substance: CEFOPERAZONE SODIUM\SULBACTAM SODIUM
     Indication: Infection prophylaxis
     Route: 065
     Dates: start: 2018

REACTIONS (6)
  - Klebsiella infection [Unknown]
  - Perinephric abscess [Unknown]
  - Pulmonary tuberculosis [Recovering/Resolving]
  - Drug interaction [Unknown]
  - Drug interaction [Unknown]
  - Off label use [Unknown]

NARRATIVE: CASE EVENT DATE: 20180101
